FAERS Safety Report 7314488-X (Version None)
Quarter: 2011Q1

REPORT INFORMATION
  Report Type: 
  Country: None (occurrence: None)
  Receive Date: 20110225
  Receipt Date: 20101006
  Transmission Date: 20110831
  Serious: No
  Sender: FDA-Public Use
  Company Number: US-MYLANLABS-2010S1016701

PATIENT
  Age: 20 Year
  Sex: Female
  Weight: 61.24 kg

DRUGS (4)
  1. CLARAVIS [Suspect]
  2. AMNESTEEM [Suspect]
  3. AMNESTEEM [Suspect]
     Dates: start: 20100615, end: 20100801
  4. CLARAVIS [Suspect]

REACTIONS (3)
  - ABDOMINAL DISCOMFORT [None]
  - PAIN IN EXTREMITY [None]
  - MOOD ALTERED [None]
